FAERS Safety Report 7648484-X (Version None)
Quarter: 2011Q3

REPORT INFORMATION
  Report Type: 
  Country: None (occurrence: None)
  Receive Date: 20110801
  Receipt Date: 20110727
  Transmission Date: 20111222
  Serious: Yes (Hospitalization)
  Sender: FDA-Public Use
  Company Number: ES-ABBOTT-11P-144-0841814-00

PATIENT

DRUGS (1)
  1. HUMIRA [Suspect]
     Indication: PSORIASIS

REACTIONS (5)
  - PNEUMONIA [None]
  - PYREXIA [None]
  - SPUTUM DISCOLOURED [None]
  - PRODUCTIVE COUGH [None]
  - MALAISE [None]
